FAERS Safety Report 17206120 (Version 4)
Quarter: 2022Q3

REPORT INFORMATION
  Report Type: Spontaneous
  Country: US (occurrence: None)
  Receive Date: 20191227
  Receipt Date: 20220817
  Transmission Date: 20221027
  Serious: Yes (Hospitalization, Other)
  Sender: FDA-Public Use
  Company Number: 2019SF85183

PATIENT
  Age: 52 Year
  Sex: Female

DRUGS (52)
  1. PRILOSEC [Suspect]
     Active Substance: OMEPRAZOLE MAGNESIUM
     Indication: Gastrooesophageal reflux disease
     Dosage: GENERIC
     Route: 065
     Dates: start: 20090406, end: 20090601
  2. PRILOSEC [Suspect]
     Active Substance: OMEPRAZOLE MAGNESIUM
     Indication: Gastrooesophageal reflux disease
     Route: 048
     Dates: start: 2011
  3. NEXIUM [Suspect]
     Active Substance: ESOMEPRAZOLE MAGNESIUM
     Indication: Gastrooesophageal reflux disease
     Route: 048
     Dates: start: 2011, end: 2013
  4. PREVACID [Suspect]
     Active Substance: LANSOPRAZOLE
     Route: 065
  5. PREVACID [Suspect]
     Active Substance: LANSOPRAZOLE
     Dosage: GENERIC (LANSOPRAZOLE)
     Route: 065
  6. PROTONIX [Suspect]
     Active Substance: PANTOPRAZOLE SODIUM
     Route: 065
  7. PROTONIX [Suspect]
     Active Substance: PANTOPRAZOLE SODIUM
     Dosage: GENERIC (LANSOPRAZOLE)
     Route: 065
  8. OMEPRAZOLE\SODIUM BICARBONATE [Suspect]
     Active Substance: OMEPRAZOLE\SODIUM BICARBONATE
     Route: 065
  9. OMEPRAZOLE\SODIUM BICARBONATE [Suspect]
     Active Substance: OMEPRAZOLE\SODIUM BICARBONATE
     Dosage: GENERIC (LANSOPRAZOLE)
     Route: 065
  10. ADVAIR HFA [Concomitant]
     Active Substance: FLUTICASONE PROPIONATE\SALMETEROL XINAFOATE
     Indication: Asthma
     Dates: start: 2005, end: 2010
  11. BUDEPRION [Concomitant]
     Active Substance: BUPROPION HYDROCHLORIDE
     Indication: Antidepressant therapy
     Dates: start: 2005, end: 2010
  12. TOPIRAMATE [Concomitant]
     Active Substance: TOPIRAMATE
     Indication: Antidepressant therapy
     Dates: start: 2009
  13. VERAPAMIL [Concomitant]
     Active Substance: VERAPAMIL HYDROCHLORIDE
     Indication: Hypertension
     Dates: start: 2009
  14. RANITIDINE [Concomitant]
     Active Substance: RANITIDINE
     Indication: Multiple allergies
     Dates: start: 2009
  15. FLUOXETINE HYDROCHLORIDE [Concomitant]
     Active Substance: FLUOXETINE HYDROCHLORIDE
     Indication: Depression
     Dates: start: 2010
  16. FLUTICASONE [Concomitant]
     Active Substance: FLUTICASONE
     Indication: Nasal aspiration
     Dates: start: 2013
  17. GABAPENTIN [Concomitant]
     Active Substance: GABAPENTIN
     Indication: Neuropathy peripheral
     Dates: start: 2013
  18. DIOVAN [Concomitant]
     Active Substance: VALSARTAN
     Indication: Hypertension
     Dates: start: 2013
  19. XOPENEX [Concomitant]
     Active Substance: LEVALBUTEROL HYDROCHLORIDE
     Indication: Asthma
     Dates: start: 2013
  20. PROMETHAZINE [Concomitant]
     Active Substance: PROMETHAZINE HYDROCHLORIDE
  21. METAXALONE [Concomitant]
     Active Substance: METAXALONE
  22. PREDNISONE [Concomitant]
     Active Substance: PREDNISONE
  23. HYDROXYZINE HYDROCHLORIDE [Concomitant]
     Active Substance: HYDROXYZINE HYDROCHLORIDE
  24. ACETAMINOPHEN\HYDROCODONE BITARTRATE [Concomitant]
     Active Substance: ACETAMINOPHEN\HYDROCODONE BITARTRATE
  25. FAMOTIDINE [Concomitant]
     Active Substance: FAMOTIDINE
  26. CIPROFLOXACIN [Concomitant]
     Active Substance: CIPROFLOXACIN
  27. METHOCARBAMOL [Concomitant]
     Active Substance: METHOCARBAMOL
  28. TRIAMCINOLONE [Concomitant]
     Active Substance: TRIAMCINOLONE
  29. CLONAZEPAM [Concomitant]
     Active Substance: CLONAZEPAM
  30. KETOCONAZOLE [Concomitant]
     Active Substance: KETOCONAZOLE
  31. ERYTHROMYCIN [Concomitant]
     Active Substance: ERYTHROMYCIN
  32. ORPHENADRINE [Concomitant]
     Active Substance: ORPHENADRINE
  33. LOVASTATIN [Concomitant]
     Active Substance: LOVASTATIN
  34. AMITRIPTYLINE [Concomitant]
     Active Substance: AMITRIPTYLINE
  35. PROPOXYPHEN [Concomitant]
  36. DICYCLOMINE [Concomitant]
     Active Substance: DICYCLOMINE HYDROCHLORIDE
  37. FROVA [Concomitant]
     Active Substance: FROVATRIPTAN SUCCINATE
  38. SINGULAIR [Concomitant]
     Active Substance: MONTELUKAST SODIUM
  39. BENZONATATE [Concomitant]
     Active Substance: BENZONATATE
  40. CARAFATE [Concomitant]
     Active Substance: SUCRALFATE
  41. CYCLOBENZAPRINE [Concomitant]
     Active Substance: CYCLOBENZAPRINE
  42. LIDODERM [Concomitant]
     Active Substance: LIDOCAINE
  43. LEVOFLOXACIN [Concomitant]
     Active Substance: LEVOFLOXACIN
  44. PROCHLORPERAZINE [Concomitant]
     Active Substance: PROCHLORPERAZINE
  45. TIZANIDINE [Concomitant]
     Active Substance: TIZANIDINE
  46. SPIRIVA [Concomitant]
     Active Substance: TIOTROPIUM BROMIDE MONOHYDRATE
  47. CETIRIZINE HYDROCHLORIDE [Concomitant]
     Active Substance: CETIRIZINE HYDROCHLORIDE
  48. CYMBALTA [Concomitant]
     Active Substance: DULOXETINE HYDROCHLORIDE
  49. CLINDAMYCIN [Concomitant]
     Active Substance: CLINDAMYCIN
  50. OFLOXACIN [Concomitant]
     Active Substance: OFLOXACIN
  51. AZITHROMYCIN [Concomitant]
     Active Substance: AZITHROMYCIN
  52. ZANTAC [Concomitant]
     Active Substance: RANITIDINE HYDROCHLORIDE
     Route: 065
     Dates: start: 2009

REACTIONS (3)
  - Chronic kidney disease [Unknown]
  - Renal failure [Unknown]
  - Acute kidney injury [Not Recovered/Not Resolved]

NARRATIVE: CASE EVENT DATE: 20131030
